FAERS Safety Report 8884971 (Version 2)
Quarter: 2013Q1

REPORT INFORMATION
  Report Type: Spontaneous
  Country: US (occurrence: US)
  Receive Date: 20121105
  Receipt Date: 20130119
  Transmission Date: 20140127
  Serious: No
  Sender: FDA-Public Use
  Company Number: US-009507513-1211USA000490

PATIENT
  Age: 59 Year
  Sex: Male

DRUGS (1)
  1. DULERA [Suspect]
     Indication: RESPIRATORY TRACT CONGESTION
     Dosage: 2 PUFFS IN AM AND 2 PUFFS IN PM
     Route: 055
     Dates: start: 201204

REACTIONS (3)
  - Respiratory tract congestion [Not Recovered/Not Resolved]
  - Drug dose omission [Unknown]
  - Product quality issue [Unknown]
